FAERS Safety Report 22241526 (Version 1)
Quarter: 2023Q2

REPORT INFORMATION
  Report Type: Spontaneous
  Country: BR (occurrence: BR)
  Receive Date: 20230421
  Receipt Date: 20230421
  Transmission Date: 20230722
  Serious: Yes (Other)
  Sender: FDA-Public Use
  Company Number: BR-002147023-NVSC2023BR089471

PATIENT
  Sex: Male
  Weight: 75 kg

DRUGS (1)
  1. TEGRETOL [Suspect]
     Active Substance: CARBAMAZEPINE
     Indication: Epilepsy
     Dosage: 1.5 DOSAGE FORM, BID (STARTED MORE THAN 40 YEARS AGO)
     Route: 048
     Dates: end: 202203

REACTIONS (6)
  - Drug level decreased [Not Recovered/Not Resolved]
  - Epilepsy [Not Recovered/Not Resolved]
  - Hypercholesterolaemia [Not Recovered/Not Resolved]
  - Drug effect less than expected [Not Recovered/Not Resolved]
  - Product availability issue [Unknown]
  - Wrong technique in product usage process [Unknown]
